FAERS Safety Report 9114781 (Version 1)
Quarter: 2013Q1

REPORT INFORMATION
  Report Type: Spontaneous
  Country: US (occurrence: None)
  Receive Date: 20130220
  Receipt Date: 20130220
  Transmission Date: 20140127
  Serious: Yes (Other)
  Sender: FDA-Public Use
  Company Number: None

PATIENT
  Sex: Female

DRUGS (2)
  1. CARBAMAZEPINE 200 MG APOTEX [Suspect]
     Indication: COMPLEX PARTIAL SEIZURES
     Dosage: 2 TABS AT BEDTIME X?1 1/2 TABS EVERY AM
     Route: 048
  2. PRIMIDONE [Suspect]
     Dosage: 1 1/2 TABS TABS AT BEDTIME
     Route: 048

REACTIONS (3)
  - Convulsion [None]
  - Therapeutic response unexpected with drug substitution [None]
  - Product substitution issue [None]
